FAERS Safety Report 21978119 (Version 1)
Quarter: 2023Q1

REPORT INFORMATION
  Report Type: Spontaneous
  Country: US (occurrence: US)
  Receive Date: 20230210
  Receipt Date: 20230210
  Transmission Date: 20230417
  Serious: Yes (Hospitalization, Other)
  Sender: FDA-Public Use
  Company Number: US-AMGEN-USASP2023019761

PATIENT
  Age: 86 Year
  Sex: Male

DRUGS (1)
  1. RITUXIMAB [Suspect]
     Active Substance: RITUXIMAB
     Indication: Waldenstrom^s macroglobulinaemia
     Dosage: UNK
     Route: 065

REACTIONS (4)
  - Chronic lymphocytic leukaemia [Unknown]
  - Necrotic lymphadenopathy [Recovering/Resolving]
  - Mental status changes [Unknown]
  - Herpes simplex [Recovering/Resolving]
